FAERS Safety Report 17943135 (Version 2)
Quarter: 2021Q2

REPORT INFORMATION
  Report Type: Spontaneous
  Country: US (occurrence: US)
  Receive Date: 20200625
  Receipt Date: 20210629
  Transmission Date: 20210717
  Serious: No
  Sender: FDA-Public Use
  Company Number: US-TEVA-2020-US-1791491

PATIENT
  Sex: Female

DRUGS (1)
  1. AZITHROMYCIN TEVA [Suspect]
     Active Substance: AZITHROMYCIN
     Route: 048

REACTIONS (8)
  - Abdominal pain upper [Recovered/Resolved]
  - Cough [Recovering/Resolving]
  - Scratch [Recovering/Resolving]
  - Pruritus [Recovered/Resolved]
  - Eczema [Recovering/Resolving]
  - Blood pressure decreased [Unknown]
  - Eating disorder [Unknown]
  - Somnolence [Unknown]
